FAERS Safety Report 17130753 (Version 5)
Quarter: 2020Q1

REPORT INFORMATION
  Report Type: Report from Study
  Country: FR (occurrence: FR)
  Receive Date: 20191209
  Receipt Date: 20200302
  Transmission Date: 20200409
  Serious: Yes (Hospitalization, Other)
  Sender: FDA-Public Use
  Company Number: FR-EXELIXIS-XL18419025817

PATIENT
  Age: 64 Year
  Sex: Male
  Weight: 85 kg

DRUGS (1)
  1. CABOZANTINIB [Suspect]
     Active Substance: CABOZANTINIB
     Indication: RENAL CELL CARCINOMA
     Dosage: 20 MG, DAILY
     Route: 048
     Dates: start: 20191021, end: 20191125

REACTIONS (2)
  - Hepatotoxicity [Recovering/Resolving]
  - Polyarthritis [Recovering/Resolving]

NARRATIVE: CASE EVENT DATE: 20191119
